FAERS Safety Report 15772321 (Version 15)
Quarter: 2019Q3

REPORT INFORMATION
  Report Type: Report from Study
  Country: JP (occurrence: JP)
  Receive Date: 20181228
  Receipt Date: 20190722
  Transmission Date: 20191004
  Serious: Yes (Hospitalization, Other)
  Sender: FDA-Public Use
  Company Number: JP-PFIZER INC-2018485653

PATIENT
  Age: 51 Year
  Sex: Male
  Weight: 61.3 kg

DRUGS (12)
  1. THYRADIN-S [Concomitant]
     Active Substance: LEVOTHYROXINE
     Dosage: 125 UG, UNK
     Dates: start: 20170404, end: 20181114
  2. BIO-THREE [Concomitant]
     Active Substance: HERBALS
     Dosage: 2 DF, UNK
     Dates: start: 20171115, end: 20181114
  3. STRONG RESTAMIN CORTISONE [Concomitant]
     Dosage: 1 DF, UNK
     Dates: start: 20181016, end: 20181105
  4. PEMBROLIZUMAB. [Suspect]
     Active Substance: PEMBROLIZUMAB
     Dosage: 200 MG, EVERY 3 WEEKS, (CYCLE 29)
     Route: 042
     Dates: start: 20181016, end: 20181016
  5. AZULENE [Concomitant]
     Active Substance: AZULENE
     Dosage: 1 DF, UNK
     Route: 061
     Dates: start: 20180320, end: 20181114
  6. HANGE-SHASHIN-TO [Concomitant]
     Active Substance: HERBALS
     Dosage: 2.5 G, UNK
     Route: 048
     Dates: start: 20180814, end: 20181114
  7. PEMBROLIZUMAB. [Suspect]
     Active Substance: PEMBROLIZUMAB
     Indication: RENAL CELL CARCINOMA
     Dosage: 200 MG, EVERY 3 WEEKS (VOLUME OF INFUSION: 100 ML)
     Route: 042
     Dates: start: 20170216, end: 20180925
  8. HEPARINOID OIL BASED CREAM NICHIIKO [Concomitant]
     Dosage: 1 DF, UNK
     Dates: start: 20170816, end: 20181114
  9. LOPERAMIDE HYDROCHLORIDE. [Concomitant]
     Active Substance: LOPERAMIDE HYDROCHLORIDE
     Dosage: 2 MG, UNK
     Dates: start: 20180727, end: 20181114
  10. AXITINIB [Suspect]
     Active Substance: AXITINIB
     Indication: RENAL CELL CARCINOMA
     Dosage: 5 MG, 2X/DAY (STARTING DOSE AT 5 MG BID, FLUCTUATED DOSES)
     Route: 048
     Dates: start: 20170216, end: 20181105
  11. AXITINIB [Suspect]
     Active Substance: AXITINIB
     Dosage: 2 MG, ONCE, (CYCLE 29)
     Route: 048
     Dates: start: 20181106, end: 20181106
  12. PEMBROLIZUMAB. [Suspect]
     Active Substance: PEMBROLIZUMAB
     Dosage: 200 MG, EVERY 3 WEEKS
     Route: 042
     Dates: start: 20190507

REACTIONS (1)
  - Drug-induced liver injury [Recovered/Resolved]

NARRATIVE: CASE EVENT DATE: 20181106
